APPROVED DRUG PRODUCT: MECLIZINE HYDROCHLORIDE
Active Ingredient: MECLIZINE HYDROCHLORIDE
Strength: 25MG
Dosage Form/Route: TABLET;ORAL
Application: A040179 | Product #002
Applicant: RISING PHARMA HOLDINGS INC
Approved: Jan 30, 1997 | RLD: No | RS: No | Type: DISCN